FAERS Safety Report 8547664-9 (Version None)
Quarter: 2012Q3

REPORT INFORMATION
  Report Type: 
  Country: None (occurrence: None)
  Receive Date: 20120727
  Receipt Date: 20120125
  Transmission Date: 20120928
  Serious: Yes (Hospitalization)
  Sender: FDA-Public Use
  Company Number: US-ASTRAZENECA-2011SE67260

PATIENT
  Age: 52 Year
  Sex: Female

DRUGS (1)
  1. SEROQUEL XR [Suspect]
     Route: 048

REACTIONS (3)
  - THERAPEUTIC RESPONSE UNEXPECTED [None]
  - ANXIETY [None]
  - DYSLEXIA [None]
